FAERS Safety Report 19957891 (Version 4)
Quarter: 2022Q1

REPORT INFORMATION
  Report Type: Report from Study
  Country: US (occurrence: US)
  Receive Date: 20211015
  Receipt Date: 20220208
  Transmission Date: 20220423
  Serious: Yes (Other)
  Sender: FDA-Public Use
  Company Number: US-SA-SAC20210908000316

PATIENT
  Age: 58 Year
  Sex: Female

DRUGS (1)
  1. AGALSIDASE BETA [Suspect]
     Active Substance: AGALSIDASE BETA
     Indication: Glycogen storage disease type II
     Dosage: 1550 MG, QOW
     Route: 042
     Dates: start: 20210628

REACTIONS (8)
  - Crohn^s disease [Unknown]
  - Nephrolithiasis [Not Recovered/Not Resolved]
  - Drug hypersensitivity [Unknown]
  - Weight increased [Unknown]
  - Pain [Not Recovered/Not Resolved]
  - Neutralising antibodies negative [Unknown]
  - Hunger [Unknown]
  - Urinary hexose tetrasaccharide increased [Unknown]

NARRATIVE: CASE EVENT DATE: 20210101
